FAERS Safety Report 4675738-1 (Version None)
Quarter: 2005Q2

REPORT INFORMATION
  Report Type: 
  Country: None (occurrence: None)
  Receive Date: 20050527
  Receipt Date: 20050308
  Transmission Date: 20051028
  Serious: Yes (Hospitalization)
  Sender: FDA-Public Use
  Company Number: US-BRISTOL-MYERS SQUIBB COMPANY-12891289

PATIENT
  Sex: Male

DRUGS (2)
  1. ERBITUX [Suspect]
     Dosage: LOADING DOSE
     Route: 042
  2. BENADRYL [Concomitant]
     Indication: PREMEDICATION

REACTIONS (1)
  - HYPOTENSION [None]
